FAERS Safety Report 4496067-5 (Version None)
Quarter: 2004Q4

REPORT INFORMATION
  Report Type: 
  Country: None (occurrence: None)
  Receive Date: 20041108
  Receipt Date: 20040419
  Transmission Date: 20050328
  Serious: Yes (Hospitalization)
  Sender: FDA-Public Use
  Company Number: DE-AMGEN-US073594

PATIENT
  Sex: Female

DRUGS (3)
  1. ENBREL [Suspect]
     Indication: POLYARTHRITIS
     Route: 058
     Dates: start: 20031201, end: 20040301
  2. VIOXX [Concomitant]
  3. PREDNISOLONE [Concomitant]

REACTIONS (1)
  - MULTIPLE SCLEROSIS [None]
